FAERS Safety Report 5465700-3 (Version None)
Quarter: 2007Q3

REPORT INFORMATION
  Report Type: 
  Country: None (occurrence: None)
  Receive Date: 20070919
  Receipt Date: 20070919
  Transmission Date: 20080115
  Serious: Yes (Other)
  Sender: FDA-Public Use
  Company Number: None

PATIENT
  Age: 66 Year
  Sex: Female

DRUGS (1)
  1. VAGIFEM [Suspect]
     Indication: VAGINAL INFECTION
     Dosage: INSERT 1 TABLET INTRAVAGINALLY TWO TIMES PER WEEK AS DIRECTED
     Route: 067

REACTIONS (1)
  - PHARMACEUTICAL PRODUCT COMPLAINT [None]
